FAERS Safety Report 17650420 (Version 1)
Quarter: 2020Q2

REPORT INFORMATION
  Report Type: Spontaneous
  Country: GB (occurrence: GB)
  Receive Date: 20200408
  Receipt Date: 20200408
  Transmission Date: 20200713
  Serious: Yes (Life-Threatening, Hospitalization, Disabling, Other)
  Sender: FDA-Public Use
  Company Number: GB-009507513-2004GBR001699

PATIENT
  Age: 11 Year
  Sex: Male
  Weight: 38.1 kg

DRUGS (2)
  1. MONTELUKAST SODIUM. [Suspect]
     Active Substance: MONTELUKAST SODIUM
     Indication: ASTHMA
     Dosage: 5-10 MG
     Route: 048
     Dates: start: 2009, end: 2018
  2. ALBUTEROL. [Concomitant]
     Active Substance: ALBUTEROL
     Dosage: UNK

REACTIONS (8)
  - Psychomotor hyperactivity [Not Recovered/Not Resolved]
  - Insomnia [Not Recovered/Not Resolved]
  - Anxiety [Not Recovered/Not Resolved]
  - Depression [Not Recovered/Not Resolved]
  - Nightmare [Not Recovered/Not Resolved]
  - Mood swings [Not Recovered/Not Resolved]
  - Suicide attempt [Not Recovered/Not Resolved]
  - Suicidal ideation [Not Recovered/Not Resolved]

NARRATIVE: CASE EVENT DATE: 2009
